FAERS Safety Report 16941818 (Version 1)
Quarter: 2019Q4

REPORT INFORMATION
  Report Type: Spontaneous
  Country: US (occurrence: US)
  Receive Date: 20190830
  Receipt Date: 20190830
  Transmission Date: 20200122
  Serious: Yes (Hospitalization)
  Sender: FDA-Public Use
  Company Number: None

PATIENT
  Sex: Male
  Weight: 75 kg

DRUGS (2)
  1. TAXOL [Suspect]
     Active Substance: PACLITAXEL
  2. CARBOPLATIN (241240) [Suspect]
     Active Substance: CARBOPLATIN

REACTIONS (5)
  - Metastases to central nervous system [None]
  - Fall [None]
  - Vasogenic cerebral oedema [None]
  - Cerebral cyst [None]
  - Tachycardia [None]

NARRATIVE: CASE EVENT DATE: 20190729
